FAERS Safety Report 18864685 (Version 1)
Quarter: 2021Q1

REPORT INFORMATION
  Report Type: Spontaneous
  Country: FR (occurrence: FR)
  Receive Date: 20210208
  Receipt Date: 20210208
  Transmission Date: 20210420
  Serious: Yes (Other)
  Sender: FDA-Public Use
  Company Number: FR-MALLINCKRODT-T202100528

PATIENT
  Age: 32 Year
  Sex: Male
  Weight: 105 kg

DRUGS (15)
  1. ACUPAN [Suspect]
     Active Substance: NEFOPAM HYDROCHLORIDE
     Indication: PAIN
     Dosage: UNK
     Route: 042
     Dates: start: 20200418, end: 20200418
  2. ACIDE TRANEXAMIQUE AGUETTANT [Suspect]
     Active Substance: TRANEXAMIC ACID
     Indication: HAEMORRHAGE
     Dosage: 1 GRAM, TOTAL
     Route: 042
     Dates: start: 20200419, end: 20200419
  3. GELOFUSINE [SUCCINYLATED GELATIN] [Suspect]
     Active Substance: SUCCINYLATED GELATIN
     Indication: HAEMORRHAGE
     Dosage: 500 MILLIGRAM, QD
     Route: 042
     Dates: start: 20200419, end: 20200419
  4. CLOTTAFACT [Suspect]
     Active Substance: FIBRINOGEN HUMAN
     Indication: HAEMORRHAGE
     Dosage: 3 GRAM, QD
     Route: 042
     Dates: start: 20200419, end: 20200419
  5. CHLORHEXIDINE [Suspect]
     Active Substance: CHLORHEXIDINE
     Indication: INFECTION PROPHYLAXIS
     Dosage: UNK
     Route: 003
     Dates: start: 20200419, end: 20200419
  6. MIDAZOLAM MYLAN [Suspect]
     Active Substance: MIDAZOLAM HYDROCHLORIDE
     Indication: INDUCTION OF ANAESTHESIA
     Dosage: 1 MILLIGRAM, QD
     Route: 042
     Dates: start: 20200419, end: 20200419
  7. OFIRMEV [Suspect]
     Active Substance: ACETAMINOPHEN
     Indication: PAIN
     Dosage: 1 GRAM, QD
     Route: 042
     Dates: start: 20200418, end: 20200418
  8. SUFENTANIL [Suspect]
     Active Substance: SUFENTANIL
     Indication: INDUCTION OF ANAESTHESIA
     Dosage: 40 MICROGRAM, QD
     Route: 042
     Dates: start: 20200419, end: 20200419
  9. SUXAMETHONIUM [Suspect]
     Active Substance: SUCCINYLCHOLINE
     Indication: ANAESTHESIA
     Dosage: 100 MILLIGRAM, QD
     Route: 042
     Dates: start: 20200419, end: 20200419
  10. IOMERON [Suspect]
     Active Substance: IOMEPROL
     Indication: COMPUTERISED TOMOGRAM
     Dosage: 120 MILLILITER, QD
     Route: 042
     Dates: start: 20200418, end: 20200418
  11. ROCURONIUM [Suspect]
     Active Substance: ROCURONIUM BROMIDE
     Indication: INDUCTION OF ANAESTHESIA
     Dosage: 100 MILLIGRAM, QD
     Route: 042
     Dates: start: 20200419, end: 20200419
  12. NORADRENALINE MYLAN [Suspect]
     Active Substance: NOREPINEPHRINE\NOREPINEPHRINE BITARTRATE
     Indication: SHOCK HAEMORRHAGIC
     Dosage: UNK
     Route: 042
     Dates: start: 20200419, end: 20200419
  13. AMOXICILLINE/ACIDE CLAVULANIQUE SANDOZ [Suspect]
     Active Substance: AMOXICILLIN\CLAVULANIC ACID
     Indication: ANTIBIOTIC PROPHYLAXIS
     Dosage: 2 GRAM (1 TOTAL)
     Route: 042
     Dates: start: 20200419, end: 20200419
  14. MORPHINE [Suspect]
     Active Substance: MORPHINE
     Indication: PAIN
     Dosage: 7 MILLIGRAM, QD
     Route: 042
     Dates: start: 20200418, end: 20200418
  15. ETOMIDATE LIPURO [Suspect]
     Active Substance: ETOMIDATE
     Indication: INDUCTION OF ANAESTHESIA
     Dosage: 40 MILLIGRAM, QD
     Route: 042
     Dates: start: 20200419, end: 20200419

REACTIONS (2)
  - Off label use [Unknown]
  - Angioedema [Recovered/Resolved]

NARRATIVE: CASE EVENT DATE: 20200418
